FAERS Safety Report 4532119-9 (Version None)
Quarter: 2004Q4

REPORT INFORMATION
  Report Type: 
  Country: None (occurrence: None)
  Receive Date: 20041217
  Receipt Date: 20041209
  Transmission Date: 20050328
  Serious: Yes (Hospitalization)
  Sender: FDA-Public Use
  Company Number: K200401873

PATIENT
  Age: 79 Year
  Sex: Female

DRUGS (2)
  1. ALTACE [Suspect]
     Indication: HYPERTENSION
     Dosage: 5 MG, QD, ORAL
     Route: 048
  2. LORAZEPAM [Concomitant]

REACTIONS (3)
  - BLOOD SODIUM DECREASED [None]
  - CONFUSIONAL STATE [None]
  - PANCREATITIS [None]
